FAERS Safety Report 4604943-5 (Version None)
Quarter: 2005Q1

REPORT INFORMATION
  Report Type: 
  Country: None (occurrence: None)
  Receive Date: 20050309
  Receipt Date: 20050309
  Transmission Date: 20050727
  Serious: Yes (Death, Life-Threatening, Hospitalization, Disabling)
  Sender: FDA-Public Use
  Company Number: None

PATIENT
  Age: 85 Year
  Sex: Female
  Weight: 36.4 kg

DRUGS (2)
  1. ENOXAPARIN SODIUM [Suspect]
     Indication: PROPHYLAXIS
     Dosage: 40MG  QAM  SUBCUTANEOUS
     Route: 058
     Dates: start: 20050225, end: 20050226
  2. HEPARIN [Suspect]
     Indication: PROPHYLAXIS
     Dosage: VARIOUS   INTRAVENOU
     Route: 042
     Dates: start: 20050211, end: 20050213

REACTIONS (2)
  - HEPARIN-INDUCED THROMBOCYTOPENIA [None]
  - LEG AMPUTATION [None]
